FAERS Safety Report 17306004 (Version 5)
Quarter: 2020Q2

REPORT INFORMATION
  Report Type: Spontaneous
  Country: US (occurrence: US)
  Receive Date: 20200123
  Receipt Date: 20200407
  Transmission Date: 20200713
  Serious: Yes (Other)
  Sender: FDA-Public Use
  Company Number: US-AMGEN-USASP2020008915

PATIENT
  Age: 60 Year
  Sex: Female

DRUGS (1)
  1. REPATHA [Suspect]
     Active Substance: EVOLOCUMAB
     Indication: HYPERLIPIDAEMIA
     Dosage: 140 MILLIGRAM, Q2WK
     Route: 058

REACTIONS (5)
  - Nasopharyngitis [Recovered/Resolved]
  - Cardiac operation [Unknown]
  - Influenza [Recovered/Resolved]
  - Ill-defined disorder [Not Recovered/Not Resolved]
  - Thoracic operation [Unknown]

NARRATIVE: CASE EVENT DATE: 202002
